FAERS Safety Report 24959140 (Version 1)
Quarter: 2025Q1

REPORT INFORMATION
  Report Type: Spontaneous
  Country: US (occurrence: US)
  Receive Date: 20250212
  Receipt Date: 20250212
  Transmission Date: 20250408
  Serious: Yes (Hospitalization)
  Sender: ROCHE
  Company Number: US-ROCHE-10000200467

PATIENT
  Age: 69 Year
  Sex: Female
  Weight: 153.31 kg

DRUGS (27)
  1. XOLAIR [Suspect]
     Active Substance: OMALIZUMAB
     Indication: Asthma
     Dosage: NOT ONGOING
     Route: 058
  2. XOLAIR [Suspect]
     Active Substance: OMALIZUMAB
     Indication: Hypersensitivity
     Dosage: IN THE STOMACH, 2 INCHES FROM NAVAL, ONGOING
     Route: 058
     Dates: start: 202411
  3. SPIRIVA [Concomitant]
     Active Substance: TIOTROPIUM BROMIDE MONOHYDRATE
     Indication: Hypersensitivity
     Dosage: 1 PUFF DAILY
     Route: 055
     Dates: start: 2009
  4. SPIRIVA [Concomitant]
     Active Substance: TIOTROPIUM BROMIDE MONOHYDRATE
     Indication: Asthma
  5. ALBUTEROL [Concomitant]
     Active Substance: ALBUTEROL
     Indication: Hypersensitivity
     Dosage: 2 PUFFS AS NEEDED EVERY 4 HOURS
     Route: 055
  6. ALBUTEROL [Concomitant]
     Active Substance: ALBUTEROL
     Indication: Asthma
     Route: 055
  7. ALBUTEROL [Concomitant]
     Active Substance: ALBUTEROL
     Indication: Wheezing
  8. ADVAIR HFA [Concomitant]
     Active Substance: FLUTICASONE PROPIONATE\SALMETEROL XINAFOATE
     Indication: Hypersensitivity
     Dosage: 1 PUFF IN THE MORNING AND 1 PUFF IN THE EVENING
     Route: 055
  9. ADVAIR HFA [Concomitant]
     Active Substance: FLUTICASONE PROPIONATE\SALMETEROL XINAFOATE
     Indication: Asthma
  10. OXYGEN [Concomitant]
     Active Substance: OXYGEN
     Indication: Hypersensitivity
     Route: 055
  11. OXYGEN [Concomitant]
     Active Substance: OXYGEN
     Indication: Asthma
     Route: 055
  12. GLIPIZIDE [Concomitant]
     Active Substance: GLIPIZIDE
  13. OMEPRAZOLE [Concomitant]
     Active Substance: OMEPRAZOLE
  14. CARVEDILOL [Concomitant]
     Active Substance: CARVEDILOL
  15. GABAPENTIN [Concomitant]
     Active Substance: GABAPENTIN
  16. CYCLOBENZAPRINE [Concomitant]
     Active Substance: CYCLOBENZAPRINE
  17. AMITRIPTYLINE [Concomitant]
     Active Substance: AMITRIPTYLINE
  18. TORSEMIDE [Concomitant]
     Active Substance: TORSEMIDE
  19. LEVOCETIRIZINE [Concomitant]
     Active Substance: LEVOCETIRIZINE
  20. ROSUVASTATIN [Concomitant]
     Active Substance: ROSUVASTATIN
  21. LOSARTAN [Concomitant]
     Active Substance: LOSARTAN
  22. FARXIGA [Concomitant]
     Active Substance: DAPAGLIFLOZIN PROPANEDIOL
  23. POTASSIUM [Concomitant]
     Active Substance: POTASSIUM
  24. MONTELUKAST [Concomitant]
     Active Substance: MONTELUKAST
  25. OZEMPIC [Concomitant]
     Active Substance: SEMAGLUTIDE
  26. LANTUS [Concomitant]
     Active Substance: INSULIN GLARGINE
  27. BAYER ASPIRIN [Concomitant]
     Active Substance: ASPIRIN

REACTIONS (12)
  - Cellulitis [Recovered/Resolved]
  - Pain [Not Recovered/Not Resolved]
  - Swelling [Unknown]
  - Sciatica [Not Recovered/Not Resolved]
  - Chest discomfort [Recovering/Resolving]
  - Cough [Recovering/Resolving]
  - Wheezing [Recovering/Resolving]
  - Product dose omission issue [Unknown]
  - Accidental exposure to product [Unknown]
  - Wrong technique in product usage process [Unknown]
  - Product quality issue [Unknown]
  - Hypersensitivity [Recovering/Resolving]

NARRATIVE: CASE EVENT DATE: 20250203
